FAERS Safety Report 6326071-3 (Version None)
Quarter: 2009Q3

REPORT INFORMATION
  Report Type: 
  Country: None (occurrence: None)
  Receive Date: 20090824
  Receipt Date: 20090810
  Transmission Date: 20100115
  Serious: Yes (Hospitalization)
  Sender: FDA-Public Use
  Company Number: FR-MYLANLABS-2009S1014168

PATIENT
  Age: 8 Year
  Sex: Male

DRUGS (3)
  1. CELECOXIB [Suspect]
     Indication: MEDULLOBLASTOMA
  2. ETOPOSIDE [Suspect]
     Indication: MEDULLOBLASTOMA
     Route: 048
  3. CYCLOPHOSPHAMIDE [Suspect]
     Indication: MEDULLOBLASTOMA
     Route: 048

REACTIONS (2)
  - SUBDURAL HAEMATOMA [None]
  - THROMBOCYTOPENIA [None]
